FAERS Safety Report 6272591-X (Version None)
Quarter: 2009Q3

REPORT INFORMATION
  Report Type: 
  Country: None (occurrence: None)
  Receive Date: 20090716
  Receipt Date: 20090716
  Transmission Date: 20100115
  Serious: Yes (Other)
  Sender: FDA-Public Use
  Company Number: None

PATIENT
  Sex: Female
  Weight: 68.4932 kg

DRUGS (1)
  1. ZOMIG [Suspect]
     Indication: MIGRAINE
     Dosage: 1 TAB 5MG PRN FOR MIGRAINE PO
     Route: 048
     Dates: start: 20000101, end: 20090713

REACTIONS (2)
  - DYSPHAGIA [None]
  - THROAT TIGHTNESS [None]
